FAERS Safety Report 16092822 (Version 1)
Quarter: 2019Q1

REPORT INFORMATION
  Report Type: Spontaneous
  Country: US (occurrence: US)
  Receive Date: 20190320
  Receipt Date: 20190320
  Transmission Date: 20190418
  Serious: Yes (Hospitalization, Other)
  Sender: FDA-Public Use
  Company Number: US-HETERO CORPORATE-HET2019US00294

PATIENT
  Sex: Male

DRUGS (1)
  1. MONTELUKAST [Suspect]
     Active Substance: MONTELUKAST SODIUM
     Indication: PRODUCT USED FOR UNKNOWN INDICATION
     Dosage: 10 MG
     Route: 065

REACTIONS (8)
  - Colitis ischaemic [Unknown]
  - Haematochezia [Unknown]
  - Ill-defined disorder [Unknown]
  - Dizziness [Unknown]
  - Hypotension [Unknown]
  - Pain [Unknown]
  - Weight decreased [Unknown]
  - Syncope [Unknown]

NARRATIVE: CASE EVENT DATE: 20180729
